FAERS Safety Report 10315007 (Version 3)
Quarter: 2014Q4

REPORT INFORMATION
  Report Type: Spontaneous
  Country: US (occurrence: US)
  Receive Date: 20140718
  Receipt Date: 20141119
  Transmission Date: 20150528
  Serious: Yes (Hospitalization, Other)
  Sender: FDA-Public Use
  Company Number: AQ-ASTRAZENECA-2014SE50569

PATIENT
  Age: 638 Month
  Sex: Male

DRUGS (11)
  1. BRILINTA [Suspect]
     Active Substance: TICAGRELOR
     Indication: ACUTE CORONARY SYNDROME
     Dosage: LOADING DOSE OF 180 MG
     Route: 048
     Dates: start: 20140519, end: 20140519
  2. A STATIN [Concomitant]
  3. AN ACE INHIBITOR [Concomitant]
  4. VICKS DAYQUIL [Concomitant]
     Active Substance: DEXTROMETHORPHAN HYDROBROMIDE\GUAIFENESIN
  5. LISINOPRIL. [Concomitant]
     Active Substance: LISINOPRIL
     Dates: start: 20140524
  6. BRILINTA [Suspect]
     Active Substance: TICAGRELOR
     Indication: ACUTE CORONARY SYNDROME
     Route: 048
     Dates: start: 20140520, end: 20140522
  7. MULTIVITAMIN [Concomitant]
     Active Substance: VITAMINS
     Dosage: DAILY
  8. ASPRIN [Concomitant]
     Active Substance: ASPIRIN
     Dates: start: 2012
  9. BRILINTA [Suspect]
     Active Substance: TICAGRELOR
     Indication: STENT PLACEMENT
     Dosage: LOADING DOSE OF 180 MG
     Route: 048
     Dates: start: 20140519, end: 20140519
  10. BRILINTA [Suspect]
     Active Substance: TICAGRELOR
     Indication: STENT PLACEMENT
     Route: 048
     Dates: start: 20140520, end: 20140522
  11. CLARITIN [Concomitant]
     Active Substance: LORATADINE

REACTIONS (9)
  - Shock [Unknown]
  - Drug ineffective [Not Recovered/Not Resolved]
  - Atrioventricular block complete [Recovered/Resolved]
  - Sinus bradycardia [Recovered/Resolved]
  - Hypertension [Unknown]
  - Ejection fraction decreased [Unknown]
  - General physical condition abnormal [Unknown]
  - Coronary artery thrombosis [Unknown]
  - Dizziness [Recovered/Resolved]

NARRATIVE: CASE EVENT DATE: 201405
